FAERS Safety Report 5745662-1 (Version None)
Quarter: 2008Q2

REPORT INFORMATION
  Report Type: 
  Country: None (occurrence: None)
  Receive Date: 20080521
  Receipt Date: 20080515
  Transmission Date: 20081010
  Serious: Yes (Other)
  Sender: FDA-Public Use
  Company Number: US-ABBOTT-08P-163-0451953-00

PATIENT
  Sex: Female
  Weight: 77.089 kg

DRUGS (4)
  1. HUMIRA [Suspect]
     Indication: RHEUMATOID ARTHRITIS
     Route: 050
  2. MELOXICAM [Concomitant]
     Indication: PAIN
     Dosage: BY MOUTH, GENERIC
  3. HYDROCODONE BITARTRATE [Concomitant]
     Indication: PAIN
     Dosage: USUALLY 2 A DAY BY MOUTH
  4. METFORMIN HCL [Concomitant]
     Indication: DIABETES MELLITUS

REACTIONS (1)
  - OESOPHAGEAL CARCINOMA [None]
